FAERS Safety Report 22032474 (Version 6)
Quarter: 2023Q2

REPORT INFORMATION
  Report Type: Report from Study
  Country: US (occurrence: US)
  Receive Date: 20230224
  Receipt Date: 20230630
  Transmission Date: 20230721
  Serious: Yes (Hospitalization)
  Sender: FDA-Public Use
  Company Number: US-ARGENX-2022-ARGX-US002140

PATIENT
  Age: 46 Year
  Sex: Male
  Weight: 127 kg

DRUGS (2)
  1. VYVGART [Suspect]
     Active Substance: EFGARTIGIMOD ALFA-FCAB
     Indication: Myasthenia gravis
     Dosage: 10 MG/KG
     Route: 042
  2. VYVGART [Suspect]
     Active Substance: EFGARTIGIMOD ALFA-FCAB
     Dosage: 10 UNK
     Route: 042
     Dates: start: 202210

REACTIONS (8)
  - Pancreatitis [Unknown]
  - Gait inability [Not Recovered/Not Resolved]
  - Speech disorder [Not Recovered/Not Resolved]
  - Diplopia [Not Recovered/Not Resolved]
  - Myasthenia gravis [Recovering/Resolving]
  - Dry eye [Unknown]
  - Eyelid ptosis [Not Recovered/Not Resolved]
  - Therapy interrupted [Not Recovered/Not Resolved]

NARRATIVE: CASE EVENT DATE: 20230501
